FAERS Safety Report 20543337 (Version 3)
Quarter: 2022Q3

REPORT INFORMATION
  Report Type: Spontaneous
  Country: JP (occurrence: JP)
  Receive Date: 20220302
  Receipt Date: 20220921
  Transmission Date: 20221027
  Serious: Yes (Hospitalization)
  Sender: FDA-Public Use
  Company Number: JP-Eisai-202112255_FYC_P_1

PATIENT
  Sex: Female

DRUGS (2)
  1. PERAMPANEL [Suspect]
     Active Substance: PERAMPANEL
     Indication: Epilepsy
     Dosage: DOSE AND FREQUENCY UNKNOWN
     Route: 048
     Dates: end: 20210504
  2. PERAMPANEL [Suspect]
     Active Substance: PERAMPANEL
     Route: 048
     Dates: start: 20210505, end: 20210505

REACTIONS (4)
  - Status epilepticus [Recovered/Resolved]
  - Altered state of consciousness [Recovered/Resolved]
  - Suicide attempt [Recovered/Resolved]
  - Intentional overdose [Recovered/Resolved]

NARRATIVE: CASE EVENT DATE: 20210505
